FAERS Safety Report 6679297-3 (Version None)
Quarter: 2010Q2

REPORT INFORMATION
  Report Type: 
  Country: None (occurrence: None)
  Receive Date: 20100409
  Receipt Date: 20100330
  Transmission Date: 20101027
  Serious: Yes (Death)
  Sender: FDA-Public Use
  Company Number: 009479

PATIENT
  Sex: Male
  Weight: 79 kg

DRUGS (7)
  1. LEVETIRACETAM [Suspect]
     Indication: EPILEPSY
     Dosage: (500 MG QD ORAL), (500 MG TID ORAL), (1000 MG BID ORAL), (500 MG TID ORAL)
     Route: 048
     Dates: start: 20080828, end: 20080829
  2. LEVETIRACETAM [Suspect]
     Indication: EPILEPSY
     Dosage: (500 MG QD ORAL), (500 MG TID ORAL), (1000 MG BID ORAL), (500 MG TID ORAL)
     Route: 048
     Dates: start: 20080830, end: 20080831
  3. LEVETIRACETAM [Suspect]
     Indication: EPILEPSY
     Dosage: (500 MG QD ORAL), (500 MG TID ORAL), (1000 MG BID ORAL), (500 MG TID ORAL)
     Route: 048
     Dates: start: 20080901, end: 20080911
  4. LEVETIRACETAM [Suspect]
     Indication: EPILEPSY
     Dosage: (500 MG QD ORAL), (500 MG TID ORAL), (1000 MG BID ORAL), (500 MG TID ORAL)
     Route: 048
     Dates: start: 20080912, end: 20081030
  5. PREDNISOLONE [Suspect]
     Indication: IMMUNOSUPPRESSION
     Dosage: (30 MG QD)
     Dates: start: 20080824, end: 20081030
  6. AZATHIOPRINE [Suspect]
     Indication: IMMUNOSUPPRESSION
     Dosage: (75 MG QD)
     Dates: start: 20080917, end: 20081030
  7. OXCARBAZEPINE [Concomitant]

REACTIONS (2)
  - SEPSIS [None]
  - WHITE BLOOD CELL COUNT DECREASED [None]
